FAERS Safety Report 22241644 (Version 4)
Quarter: 2023Q4

REPORT INFORMATION
  Report Type: Report from Study
  Country: US (occurrence: US)
  Receive Date: 20230421
  Receipt Date: 20231006
  Transmission Date: 20240110
  Serious: Yes (Other)
  Sender: FDA-Public Use
  Company Number: US-002147023-NVSC2023US088015

PATIENT
  Sex: Male

DRUGS (4)
  1. ENTRESTO [Suspect]
     Active Substance: SACUBITRIL\VALSARTAN
     Indication: Product used for unknown indication
     Dosage: 1 DOSAGE FORM, BID (24/26 MG)
     Route: 065
     Dates: start: 20230408
  2. AMIODARONE [Suspect]
     Active Substance: AMIODARONE
     Indication: Product used for unknown indication
     Dosage: UNK
     Route: 065
  3. LOSARTAN [Suspect]
     Active Substance: LOSARTAN
     Indication: Product used for unknown indication
     Dosage: UNK
     Route: 065
  4. LISINOPRIL [Suspect]
     Active Substance: LISINOPRIL
     Indication: Product used for unknown indication
     Dosage: UNK
     Route: 065

REACTIONS (13)
  - Atrial fibrillation [Unknown]
  - Cardiomyopathy [Unknown]
  - Ejection fraction decreased [Unknown]
  - Blood cholesterol increased [Unknown]
  - COVID-19 [Unknown]
  - Cough [Unknown]
  - Rotator cuff syndrome [Unknown]
  - Hypotension [Unknown]
  - Heart rate decreased [Unknown]
  - Dizziness postural [Unknown]
  - Hypersensitivity [Unknown]
  - Dyspnoea exertional [Unknown]
  - Contraindicated product administered [Unknown]
